FAERS Safety Report 9752738 (Version 1)
Quarter: 2013Q4

REPORT INFORMATION
  Report Type: Spontaneous
  Country: US (occurrence: US)
  Receive Date: 20131213
  Receipt Date: 20131213
  Transmission Date: 20140711
  Serious: No
  Sender: FDA-Public Use
  Company Number: US-009507513-1312USA002300

PATIENT
  Age: 22 Year
  Sex: Female
  Weight: 56.69 kg

DRUGS (2)
  1. NUVARING [Suspect]
     Indication: CONTRACEPTION
     Dosage: 3 WEEKS IN 1 WEEK OUTUNK
     Route: 067
     Dates: start: 20131112
  2. NUVARING [Suspect]
     Dosage: 3 WEEKS IN 1 WEEK OUT
     Route: 067
     Dates: start: 201210

REACTIONS (1)
  - Menstrual disorder [Unknown]
